FAERS Safety Report 7546974-1 (Version None)
Quarter: 2011Q2

REPORT INFORMATION
  Report Type: 
  Country: None (occurrence: None)
  Receive Date: 20110607
  Receipt Date: 20110526
  Transmission Date: 20111010
  Serious: Yes (Other)
  Sender: FDA-Public Use
  Company Number: 2011SP024937

PATIENT
  Age: 77 Year
  Sex: Female

DRUGS (1)
  1. ASMANEX TWISTHALER [Suspect]
     Indication: ASTHMA
     Dosage: 220 MCG;BID;INH
     Route: 055

REACTIONS (2)
  - OFF LABEL USE [None]
  - CARDIAC FAILURE CONGESTIVE [None]
